FAERS Safety Report 6130288-0 (Version None)
Quarter: 2009Q1

REPORT INFORMATION
  Report Type: 
  Country: None (occurrence: None)
  Receive Date: 20090324
  Receipt Date: 20090318
  Transmission Date: 20090719
  Serious: Yes (Other)
  Sender: FDA-Public Use
  Company Number: JP-PFIZER INC-2009185146

PATIENT

DRUGS (1)
  1. MEDROL [Suspect]
     Route: 048

REACTIONS (3)
  - EXTRAVASATION [None]
  - PURPURA [None]
  - SKIN ATROPHY [None]
